FAERS Safety Report 6183887-4 (Version None)
Quarter: 2009Q2

REPORT INFORMATION
  Report Type: 
  Country: None (occurrence: None)
  Receive Date: 20090508
  Receipt Date: 20090424
  Transmission Date: 20091009
  Serious: Yes (Other)
  Sender: FDA-Public Use
  Company Number: CA-ROCHE-624725

PATIENT
  Age: 17 Year
  Sex: Male

DRUGS (1)
  1. ACCUTANE [Suspect]
     Indication: ACNE
     Route: 048
     Dates: start: 20060101

REACTIONS (6)
  - CARDIAC DISORDER [None]
  - DEPRESSION [None]
  - ERECTILE DYSFUNCTION [None]
  - IRRITABLE BOWEL SYNDROME [None]
  - KERATOCONJUNCTIVITIS SICCA [None]
  - RESPIRATORY DISORDER [None]
